FAERS Safety Report 21388854 (Version 1)
Quarter: 2022Q3

REPORT INFORMATION
  Report Type: Spontaneous
  Country: US (occurrence: None)
  Receive Date: 20220927
  Receipt Date: 20220927
  Transmission Date: 20221027
  Serious: No
  Sender: FDA-Public Use
  Company Number: None

PATIENT
  Age: 42 Year
  Sex: Female
  Weight: 68.9 kg

DRUGS (8)
  1. CAPECITABINE [Suspect]
     Active Substance: CAPECITABINE
     Dosage: FREQUENCY : TWICE A DAY;?
     Route: 048
     Dates: start: 20220113
  2. DEXAMETHASONE [Concomitant]
     Active Substance: DEXAMETHASONE
  3. FAMOTIDINE [Concomitant]
     Active Substance: FAMOTIDINE
  4. HERCEPTIN [Concomitant]
     Active Substance: TRASTUZUMAB
  5. HYDROCORTISONE [Concomitant]
     Active Substance: HYDROCORTISONE
  6. METAMUCIL [Concomitant]
     Active Substance: PLANTAGO SEED
  7. POTASSIUM [Concomitant]
     Active Substance: POTASSIUM
  8. PROBIOTICS NOS [Concomitant]
     Active Substance: PROBIOTICS NOS

REACTIONS (1)
  - Palmar-plantar erythrodysaesthesia syndrome [None]
